FAERS Safety Report 19169131 (Version 6)
Quarter: 2025Q3

REPORT INFORMATION
  Report Type: Spontaneous
  Country: EU (occurrence: EU)
  Receive Date: 20210422
  Receipt Date: 20250919
  Transmission Date: 20251021
  Serious: Yes (Death, Life-Threatening, Hospitalization, Other)
  Sender: PURDUE
  Company Number: EU-STADA-221090

PATIENT
  Age: 51 Year
  Sex: Female

DRUGS (6)
  1. MORPHINE SULFATE [Suspect]
     Active Substance: MORPHINE SULFATE
     Indication: Substance use
     Route: 065
  2. DIAZEPAM [Suspect]
     Active Substance: DIAZEPAM
     Indication: Substance use
     Route: 065
  3. CODEINE [Suspect]
     Active Substance: CODEINE
     Indication: Substance use
     Route: 065
  4. PREGABALIN [Suspect]
     Active Substance: PREGABALIN
     Indication: Substance use
     Route: 065
  5. METHADONE [Suspect]
     Active Substance: METHADONE HYDROCHLORIDE
     Indication: Substance use
     Route: 065
  6. QUETIAPINE [Suspect]
     Active Substance: QUETIAPINE
     Indication: Substance use
     Route: 065

REACTIONS (7)
  - Asphyxia [Fatal]
  - Substance abuse [Fatal]
  - Respiratory depression [Fatal]
  - Intentional product misuse [Fatal]
  - Cardiopulmonary failure [Fatal]
  - Poisoning [Fatal]
  - Overdose [Fatal]
